FAERS Safety Report 6912709-6 (Version None)
Quarter: 2010Q3

REPORT INFORMATION
  Report Type: 
  Country: None (occurrence: None)
  Receive Date: 20100806
  Receipt Date: 20081002
  Transmission Date: 20110219
  Serious: No
  Sender: FDA-Public Use
  Company Number: US-PFIZER INC-2008083273

PATIENT
  Sex: Male
  Weight: 84.8 kg

DRUGS (9)
  1. VFEND [Suspect]
     Indication: CANDIDIASIS
     Dates: start: 20080927
  2. DOXIL [Concomitant]
  3. MAGNESIUM OXIDE [Concomitant]
  4. TACROLIMUS [Concomitant]
  5. VANCOMYCIN [Concomitant]
  6. HYDROCODONE BITARTRATE [Concomitant]
  7. NORCO [Concomitant]
  8. ACETAMINOPHEN [Concomitant]
  9. ALL OTHER THERAPEUTIC PRODUCTS [Concomitant]

REACTIONS (2)
  - BLOOD CALCIUM INCREASED [None]
  - DRUG DOSE OMISSION [None]
